FAERS Safety Report 4413056-7 (Version None)
Quarter: 2004Q3

REPORT INFORMATION
  Report Type: 
  Country: None (occurrence: None)
  Receive Date: 20040802
  Receipt Date: 20040802
  Transmission Date: 20050211
  Serious: Yes (Hospitalization)
  Sender: FDA-Public Use
  Company Number: None

PATIENT
  Age: 76 Year
  Sex: Female
  Weight: 47.6277 kg

DRUGS (13)
  1. SANDOSTATIN [Suspect]
     Indication: SMALL INTESTINAL OBSTRUCTION
     Dosage: 100 MCG TID SQ
     Route: 058
     Dates: start: 20040630, end: 20040714
  2. SANDOSTATIN [Suspect]
     Indication: SMALL INTESTINAL OBSTRUCTION
     Dosage: 30 MG Q MONTH IM
     Route: 030
     Dates: start: 20040630, end: 20040630
  3. CORAL CALCIUM [Concomitant]
  4. PRILOSEC [Concomitant]
  5. ZOFRAN [Concomitant]
  6. ATROVET [Concomitant]
  7. PENICILLIN V POTASSIUM [Concomitant]
  8. OXYCONTIN [Concomitant]
  9. PERCOCET [Concomitant]
  10. ESTRACE [Concomitant]
  11. DURAGESIC [Concomitant]
  12. MORPHINE [Concomitant]
  13. IV FLUIDS [Concomitant]

REACTIONS (2)
  - ENDOMETRIAL CANCER [None]
  - SMALL INTESTINAL OBSTRUCTION [None]
